FAERS Safety Report 5176598-5 (Version None)
Quarter: 2006Q4

REPORT INFORMATION
  Report Type: 
  Country: None (occurrence: None)
  Receive Date: 20061215
  Receipt Date: 20061206
  Transmission Date: 20070319
  Serious: Yes (Life-Threatening, Hospitalization)
  Sender: FDA-Public Use
  Company Number: DE-ABBOTT-06P-062-0352985-00

PATIENT
  Sex: Female

DRUGS (21)
  1. ERGENYL CHRONO [Suspect]
     Indication: EPILEPSY
     Route: 048
     Dates: start: 20010101, end: 20060126
  2. ERGENYL CHRONO [Suspect]
     Dates: start: 20060127, end: 20060127
  3. ERGENYL CHRONO [Suspect]
     Dates: start: 20060128, end: 20060128
  4. ERGENYL CHRONO [Suspect]
     Dates: start: 20060129, end: 20060212
  5. ERGENYL CHRONO [Suspect]
     Dates: start: 20060213
  6. MEROPENEM [Interacting]
     Indication: PNEUMONIA
     Route: 042
     Dates: start: 20060120, end: 20060129
  7. METRONIDAZOLE [Concomitant]
     Indication: PNEUMONIA
     Route: 042
     Dates: start: 20060116, end: 20060125
  8. UNACID [Concomitant]
     Indication: PNEUMONIA
     Route: 042
     Dates: start: 20060113, end: 20060120
  9. TOBRAMYCIN [Concomitant]
     Indication: PNEUMONIA
     Route: 042
     Dates: start: 20060116, end: 20060122
  10. CEFOTIAM HYDROCHLORIDE [Concomitant]
     Indication: DRUG USE FOR UNKNOWN INDICATION
     Dates: start: 20060113, end: 20060116
  11. E153 AND GLUCOSE 5% [Concomitant]
     Indication: DRUG USE FOR UNKNOWN INDICATION
  12. ACETYLCYSTEINE [Concomitant]
     Indication: DRUG USE FOR UNKNOWN INDICATION
  13. LACTOBACILLUS ACIDOPHILUS [Concomitant]
     Indication: DRUG USE FOR UNKNOWN INDICATION
  14. CEFPODOXIME PROXETIL [Concomitant]
     Indication: DRUG USE FOR UNKNOWN INDICATION
     Dates: end: 20060116
  15. ACETAMINOPHEN [Concomitant]
     Indication: DRUG USE FOR UNKNOWN INDICATION
  16. RACECADOTRIL [Concomitant]
     Indication: DRUG USE FOR UNKNOWN INDICATION
  17. IBUPROFEN [Concomitant]
     Indication: DRUG USE FOR UNKNOWN INDICATION
  18. DICLOFENAC SODIUM [Concomitant]
     Indication: DRUG USE FOR UNKNOWN INDICATION
  19. AMPICILLIN SODIUM/SULBACTAM SODIUM [Concomitant]
     Indication: DRUG USE FOR UNKNOWN INDICATION
  20. TOBRAMYCIN [Concomitant]
     Indication: DRUG USE FOR UNKNOWN INDICATION
  21. DIAZEPAM [Concomitant]
     Indication: DRUG USE FOR UNKNOWN INDICATION

REACTIONS (10)
  - ANOREXIA [None]
  - DEHYDRATION [None]
  - DIARRHOEA [None]
  - DRUG INTERACTION [None]
  - DRUG LEVEL DECREASED [None]
  - DRUG LEVEL INCREASED [None]
  - GRAND MAL CONVULSION [None]
  - LOBAR PNEUMONIA [None]
  - VOMITING [None]
  - WEIGHT DECREASED [None]
